FAERS Safety Report 6676039-2 (Version None)
Quarter: 2010Q2

REPORT INFORMATION
  Report Type: 
  Country: None (occurrence: None)
  Receive Date: 20100412
  Receipt Date: 20100329
  Transmission Date: 20101027
  Serious: Yes (Other)
  Sender: FDA-Public Use
  Company Number: GB-RANBAXY-2010RR-33012

PATIENT
  Sex: Female

DRUGS (7)
  1. SERTRALINE HCL [Suspect]
     Indication: DEPRESSED MOOD
     Dosage: UNK MG, QD
     Route: 048
  2. CLOZARIL [Suspect]
     Indication: PARKINSON'S DISEASE
     Dosage: 300 MG, UNK
     Route: 048
     Dates: start: 20091116
  3. CLOZARIL [Suspect]
     Dosage: 250 MG, QD
     Route: 048
  4. CLOZARIL [Suspect]
     Dosage: 200 MG, QD
  5. HYOSCINE HBR HYT [Concomitant]
  6. SERTRALINE HCL [Concomitant]
  7. CLOZARIL [Concomitant]

REACTIONS (5)
  - ANTIPSYCHOTIC DRUG LEVEL INCREASED [None]
  - CONSTIPATION [None]
  - ELECTROCARDIOGRAM QT PROLONGED [None]
  - SALIVARY HYPERSECRETION [None]
  - TACHYCARDIA [None]
